FAERS Safety Report 24812486 (Version 3)
Quarter: 2025Q4

REPORT INFORMATION
  Report Type: Spontaneous
  Country: IN (occurrence: IN)
  Receive Date: 20250106
  Receipt Date: 20251009
  Transmission Date: 20260117
  Serious: Yes (Life-Threatening, Hospitalization, Other)
  Sender: CIPLA
  Company Number: IN-CIPLA LTD.-2024IN15720

PATIENT

DRUGS (1)
  1. AMLODIPINE [Suspect]
     Active Substance: AMLODIPINE BESYLATE
     Indication: Product used for unknown indication
     Dosage: 40 TABLETS OF AMLODIPINE 5MG
     Route: 048
     Dates: start: 20230316

REACTIONS (11)
  - Acute kidney injury [Recovered/Resolved]
  - Pulmonary oedema [Recovered/Resolved]
  - Acinetobacter infection [Unknown]
  - Capillary leak syndrome [Recovered/Resolved]
  - Intentional overdose [Recovered/Resolved]
  - Escherichia infection [Unknown]
  - Pleural effusion [Recovered/Resolved]
  - Klebsiella infection [Recovered/Resolved]
  - Hyperglycaemia [Unknown]
  - Vomiting [Recovered/Resolved]
  - Hypotension [Recovered/Resolved]

NARRATIVE: CASE EVENT DATE: 20230316
